FAERS Safety Report 8787528 (Version 1)
Quarter: 2012Q4

REPORT INFORMATION
  Report Type: 
  Country: US (occurrence: US)
  Receive Date: 20120914
  Receipt Date: 20120914
  Transmission Date: 20130627
  Serious: No
  Sender: FDA-Public Use
  Company Number: US-VERTEX PHARMACEUTICAL INC.-AE-2012-010294

PATIENT

DRUGS (7)
  1. INCIVEK [Suspect]
     Indication: HEPATITIS C
     Route: 048
  2. PEGASYS [Concomitant]
     Indication: HEPATITIS C
     Route: 058
     Dates: start: 20120405
  3. RIBAVIRIN [Concomitant]
     Indication: HEPATITIS C
     Route: 048
     Dates: start: 20120405
  4. CENTRUM CHW [Concomitant]
  5. NEXIUM [Concomitant]
     Route: 048
     Dates: start: 20120405
  6. SYNTHROID [Concomitant]
     Route: 048
     Dates: start: 20120709
  7. DARBEPOETIN ALFA IN POLYSORBAT [Concomitant]
     Route: 058

REACTIONS (1)
  - Rash macular [Not Recovered/Not Resolved]
